FAERS Safety Report 7086668-2 (Version None)
Quarter: 2010Q4

REPORT INFORMATION
  Report Type: 
  Country: None (occurrence: None)
  Receive Date: 20101105
  Receipt Date: 20101022
  Transmission Date: 20110411
  Serious: Yes (Hospitalization)
  Sender: FDA-Public Use
  Company Number: FR-VALEANT-2010VX001812

PATIENT
  Age: 54 Year
  Sex: Female

DRUGS (2)
  1. ANCOTIL [Suspect]
     Route: 042
     Dates: start: 20100817, end: 20100824
  2. FUNGIZONE [Suspect]
     Route: 042
     Dates: start: 20100817, end: 20100823

REACTIONS (2)
  - HAEMOLYTIC ANAEMIA [None]
  - RENAL FAILURE ACUTE [None]
